FAERS Safety Report 12054320 (Version 1)
Quarter: 2016Q1

REPORT INFORMATION
  Report Type: Spontaneous
  Country: US (occurrence: US)
  Receive Date: 20160209
  Receipt Date: 20160209
  Transmission Date: 20160526
  Serious: No
  Sender: FDA-Public Use
  Company Number: US-B.I. PHARMACEUTICALS,INC./RIDGEFIELD-2016-BI-05403BP

PATIENT
  Age: 56 Year
  Sex: Male
  Weight: 52.16 kg

DRUGS (3)
  1. VALIUM [Concomitant]
     Active Substance: DIAZEPAM
     Indication: ANXIETY
     Dosage: 4 ANZ
     Route: 048
     Dates: start: 1996
  2. COMBIVENT [Suspect]
     Active Substance: ALBUTEROL SULFATE\IPRATROPIUM BROMIDE
     Indication: CHRONIC OBSTRUCTIVE PULMONARY DISEASE
     Dosage: DOSE PER APPLICATION: 1 INHALATION SPRAY; DAILY DOSE: 4 INHALATION SPRAY
     Route: 055
     Dates: start: 2014
  3. ZYPREXA [Concomitant]
     Active Substance: OLANZAPINE
     Indication: SCHIZOPHRENIA
     Dosage: DOSE PER APPLICATION: 1
     Route: 048
     Dates: start: 2009

REACTIONS (4)
  - Hypoxia [Not Recovered/Not Resolved]
  - Hypoxia [Not Recovered/Not Resolved]
  - Lung disorder [Not Recovered/Not Resolved]
  - Product quality issue [Unknown]

NARRATIVE: CASE EVENT DATE: 2015
